FAERS Safety Report 5888760-4 (Version None)
Quarter: 2008Q3

REPORT INFORMATION
  Report Type: 
  Country: None (occurrence: None)
  Receive Date: 20080916
  Receipt Date: 20080916
  Transmission Date: 20090109
  Serious: Yes (Other)
  Sender: FDA-Public Use
  Company Number: None

PATIENT
  Age: 50 Year
  Sex: Female
  Weight: 65.7716 kg

DRUGS (3)
  1. FLUCONAZOLE [Suspect]
     Indication: VULVOVAGINAL MYCOTIC INFECTION
     Dosage: 150MG ONCE PO
     Route: 048
     Dates: start: 20080911, end: 20080911
  2. IBUPROFEN [Concomitant]
  3. ETODOLAC [Concomitant]

REACTIONS (6)
  - ALCOHOL USE [None]
  - HEADACHE [None]
  - INFLUENZA LIKE ILLNESS [None]
  - JOINT SPRAIN [None]
  - NAUSEA [None]
  - PRURITUS [None]
